FAERS Safety Report 4428690-8 (Version None)
Quarter: 2004Q3

REPORT INFORMATION
  Report Type: 
  Country: None (occurrence: None)
  Receive Date: 20040818
  Receipt Date: 20031118
  Transmission Date: 20050211
  Serious: Yes (Death, Life-Threatening)
  Sender: FDA-Public Use
  Company Number: US-BRISTOL-MYERS SQUIBB COMPANY-12440103

PATIENT
  Age: 85 Year
  Sex: Female

DRUGS (9)
  1. TEQUIN [Suspect]
     Indication: PYREXIA
     Route: 040
     Dates: start: 20001224, end: 20001224
  2. AMIODARONE HCL [Suspect]
     Indication: ARRHYTHMIA
     Route: 040
  3. AMIODARONE HCL [Suspect]
     Indication: TACHYCARDIA
     Route: 040
  4. FUROSEMIDE [Concomitant]
  5. NITROGLYCERIN [Concomitant]
  6. ACETAMINOPHEN [Concomitant]
  7. PROMETHAZINE [Concomitant]
  8. LORAZEPAM [Concomitant]
  9. DEXTROSE 5% 1/2 NORMAL SALINE + KCL [Concomitant]

REACTIONS (2)
  - TACHYCARDIA [None]
  - TORSADE DE POINTES [None]
